FAERS Safety Report 10086244 (Version 1)
Quarter: 2014Q2

REPORT INFORMATION
  Report Type: Spontaneous
  Country: US (occurrence: None)
  Receive Date: 20140416
  Receipt Date: 20140416
  Transmission Date: 20141212
  Serious: Yes (Death)
  Sender: FDA-Public Use
  Company Number: 1713747-2014-99948

PATIENT
  Sex: Male

DRUGS (3)
  1. DELFLEX [Suspect]
     Indication: RENAL FAILURE CHRONIC
  2. DELFLEX [Suspect]
     Indication: PERITONEAL DIALYSIS
  3. LIBERTY CYCLER AND TUBING [Concomitant]

REACTIONS (1)
  - Death [None]
